FAERS Safety Report 12161368 (Version 1)
Quarter: 2016Q1

REPORT INFORMATION
  Report Type: Other
  Country: US (occurrence: US)
  Receive Date: 20160308
  Receipt Date: 20160308
  Transmission Date: 20160526
  Serious: Yes (Other)
  Sender: FDA-Public Use
  Company Number: US-GUTHY-RENKER LLC-1048833

PATIENT
  Age: 65 Year
  Sex: Female

DRUGS (2)
  1. MEDICATIONS FOR LUPUS [Concomitant]
  2. IT COSMETICS BYE BYE FOUNDATION SPF 50+ [Suspect]
     Active Substance: TITANIUM DIOXIDE\ZINC OXIDE
     Indication: THERAPEUTIC SKIN CARE TOPICAL
     Route: 061
     Dates: start: 20160227

REACTIONS (3)
  - Blister [None]
  - Angioedema [Recovering/Resolving]
  - Urticaria [None]

NARRATIVE: CASE EVENT DATE: 20160227
